FAERS Safety Report 7601960-8 (Version None)
Quarter: 2011Q3

REPORT INFORMATION
  Report Type: 
  Country: None (occurrence: None)
  Receive Date: 20110711
  Receipt Date: 20110701
  Transmission Date: 20111222
  Serious: Yes (Other)
  Sender: FDA-Public Use
  Company Number: US-MYLANLABS-2011S1011362

PATIENT
  Age: 70 Year
  Sex: Female
  Weight: 89.36 kg

DRUGS (27)
  1. TOPIRAMATE [Suspect]
     Route: 048
     Dates: start: 20110501, end: 20110525
  2. ROPINIROLE [Concomitant]
  3. ASPIRIN [Concomitant]
     Indication: TRANSIENT ISCHAEMIC ATTACK
  4. ACTONEL [Concomitant]
  5. ADVAIR DISKUS 100/50 [Concomitant]
  6. VITAMIN E [Concomitant]
  7. MICARDIS [Concomitant]
     Indication: BLOOD PRESSURE
  8. VITAMIN D [Concomitant]
  9. ASCORBIC ACID [Concomitant]
  10. FLAXSEED [Concomitant]
  11. VITAMIN TAB [Concomitant]
  12. TOPIRAMATE [Suspect]
     Indication: CONVULSION
     Route: 048
     Dates: start: 20101101, end: 20110501
  13. DOMPERIDON /00498201/ [Concomitant]
  14. SODIUM CHLORIDE [Concomitant]
  15. CALTRATE + D /00188401/ [Concomitant]
  16. NASACORT [Concomitant]
     Route: 045
  17. METAMUCIL-2 [Concomitant]
  18. TOPIRAMATE [Suspect]
     Route: 048
     Dates: start: 20101101, end: 20110501
  19. FEXOFENADINE [Concomitant]
     Indication: MULTIPLE ALLERGIES
  20. NASALCROM [Concomitant]
  21. VITAMIN B COMPLEX CAP [Concomitant]
  22. TOPIRAMATE [Suspect]
     Route: 048
     Dates: start: 20110501, end: 20110525
  23. HYDROCHLOROTHIAZIDE [Concomitant]
     Indication: FLUID RETENTION
  24. IPRATROPIUM BROMIDE AND ALBUTEROL SULFATE [Concomitant]
  25. ATIVAN [Suspect]
     Indication: CONVULSION
     Route: 048
     Dates: end: 20110501
  26. ATIVAN [Suspect]
     Route: 048
     Dates: start: 20110501, end: 20110508
  27. PANTOPRAZOLE [Concomitant]
     Indication: ABDOMINAL PAIN UPPER

REACTIONS (8)
  - CONFUSIONAL STATE [None]
  - CONVULSION [None]
  - SPEECH DISORDER [None]
  - GAIT DISTURBANCE [None]
  - DYSARTHRIA [None]
  - BALANCE DISORDER [None]
  - DRUG INEFFECTIVE [None]
  - MOBILITY DECREASED [None]
